FAERS Safety Report 7631999-8 (Version None)
Quarter: 2011Q3

REPORT INFORMATION
  Report Type: 
  Country: None (occurrence: None)
  Receive Date: 20110725
  Receipt Date: 20110521
  Transmission Date: 20111222
  Serious: Yes (Other)
  Sender: FDA-Public Use
  Company Number: US-BRISTOL-MYERS SQUIBB COMPANY-15765944

PATIENT
  Age: 69 Year
  Sex: Female
  Weight: 61 kg

DRUGS (7)
  1. CALCIUM CARBONATE [Concomitant]
  2. MULTI-VITAMIN [Concomitant]
  3. XANAX [Concomitant]
     Dosage: 1 DF = .25 UNIT NOT MENTIONED
  4. DIGOXIN [Concomitant]
  5. ASPIRIN [Concomitant]
  6. COUMADIN [Suspect]
     Indication: HEART VALVE REPLACEMENT
     Dosage: INTRPD + RESTR ON 22MAY2011,5MG ON WK 2 DAYS(TUE,THURS)
  7. ESTRACE [Concomitant]

REACTIONS (1)
  - INTERNATIONAL NORMALISED RATIO FLUCTUATION [None]
